FAERS Safety Report 6182243-2 (Version None)
Quarter: 2009Q2

REPORT INFORMATION
  Report Type: 
  Country: None (occurrence: None)
  Receive Date: 20090505
  Receipt Date: 20090505
  Transmission Date: 20091009
  Serious: Yes (Other)
  Sender: FDA-Public Use
  Company Number: None

PATIENT
  Age: 82 Year
  Sex: Male
  Weight: 74.1631 kg

DRUGS (2)
  1. LOVENOX [Suspect]
     Indication: TRICUSPID VALVE REPAIR
     Dosage: 80MG Q12 HRS SQ
     Route: 058
     Dates: start: 20090415, end: 20090422
  2. LOVENOX [Suspect]
     Indication: ANTICOAGULANT THERAPY
     Dosage: 60MG Q12 HOURS SQ
     Route: 058
     Dates: start: 20090422, end: 20090501

REACTIONS (3)
  - HAEMOGLOBIN DECREASED [None]
  - POST PROCEDURAL HAEMATOMA [None]
  - WOUND SECRETION [None]
